FAERS Safety Report 17135238 (Version 2)
Quarter: 2019Q4

REPORT INFORMATION
  Report Type: Spontaneous
  Country: IN (occurrence: IN)
  Receive Date: 20191210
  Receipt Date: 20191220
  Transmission Date: 20200122
  Serious: Yes (Death, Other)
  Sender: FDA-Public Use
  Company Number: IN-ADIENNEP-2019AD000619

PATIENT
  Age: 33 Month
  Sex: Male

DRUGS (4)
  1. THIOTEPA. [Suspect]
     Active Substance: THIOTEPA
     Indication: ALLOGENIC STEM CELL TRANSPLANTATION
  2. FLUDARABINE [Suspect]
     Active Substance: FLUDARABINE PHOSPHATE
     Indication: ALLOGENIC STEM CELL TRANSPLANTATION
  3. TREOSULFAN [Suspect]
     Active Substance: TREOSULFAN
     Indication: ALLOGENIC STEM CELL TRANSPLANTATION
  4. ANTITHYMOCYTE IMMUNOGLOBULIN [Suspect]
     Active Substance: THYMOCYTE IMMUNE GLOBULIN NOS
     Indication: ALLOGENIC STEM CELL TRANSPLANTATION

REACTIONS (13)
  - Mucosal inflammation [Unknown]
  - Rhinovirus infection [Unknown]
  - Hyperkalaemia [Fatal]
  - Adenovirus infection [Unknown]
  - Acute kidney injury [Unknown]
  - Necrotising colitis [Fatal]
  - Pneumocystis jirovecii pneumonia [Fatal]
  - Epstein-Barr virus infection [Fatal]
  - Pleural effusion [Fatal]
  - Lower respiratory tract infection [Unknown]
  - Pneumonia viral [Fatal]
  - Proctitis [Unknown]
  - Gastroenteritis sapovirus [Unknown]
